FAERS Safety Report 4493872-6 (Version None)
Quarter: 2004Q4

REPORT INFORMATION
  Report Type: 
  Country: None (occurrence: None)
  Receive Date: 20041102
  Receipt Date: 20041021
  Transmission Date: 20050328
  Serious: Yes (Hospitalization)
  Sender: FDA-Public Use
  Company Number: 2004CG02194

PATIENT
  Age: 73 Year
  Sex: Male

DRUGS (2)
  1. XYLOCAINE [Suspect]
     Indication: LOCAL ANAESTHESIA
     Dates: start: 20020901, end: 20020901
  2. BETADINE [Concomitant]

REACTIONS (4)
  - ANAESTHETIC COMPLICATION [None]
  - ENDOPHTHALMITIS [None]
  - OFF LABEL USE [None]
  - POST PROCEDURAL COMPLICATION [None]
